FAERS Safety Report 19868885 (Version 2)
Quarter: 2022Q1

REPORT INFORMATION
  Report Type: Spontaneous
  Country: US (occurrence: US)
  Receive Date: 20210922
  Receipt Date: 20220105
  Transmission Date: 20220423
  Serious: Yes (Hospitalization)
  Sender: FDA-Public Use
  Company Number: US-PFIZER INC-202101199001

PATIENT
  Age: 68 Year
  Sex: Female

DRUGS (2)
  1. XELJANZ XR [Suspect]
     Active Substance: TOFACITINIB CITRATE
     Dosage: 11 MG
     Dates: start: 20210707, end: 2021
  2. XELJANZ XR [Suspect]
     Active Substance: TOFACITINIB CITRATE
     Dosage: 11 MG
     Dates: start: 20210914, end: 20211228

REACTIONS (5)
  - Fall [Recovering/Resolving]
  - Upper limb fracture [Recovering/Resolving]
  - Rib fracture [Recovering/Resolving]
  - Traumatic liver injury [Recovering/Resolving]
  - Traumatic lung injury [Recovering/Resolving]

NARRATIVE: CASE EVENT DATE: 20210101
